FAERS Safety Report 20899390 (Version 2)
Quarter: 2022Q3

REPORT INFORMATION
  Report Type: Spontaneous
  Country: US (occurrence: US)
  Receive Date: 20220601
  Receipt Date: 20220819
  Transmission Date: 20221026
  Serious: Yes (Disabling, Other)
  Sender: FDA-Public Use
  Company Number: US-SA-SAC20220530001106

PATIENT
  Age: 63 Year
  Sex: Male

DRUGS (1)
  1. ZANTAC [Suspect]
     Active Substance: RANITIDINE HYDROCHLORIDE
     Indication: Dyspepsia
     Dosage: 75 MG
     Route: 065
     Dates: start: 201001, end: 201312

REACTIONS (4)
  - Prostate cancer stage III [Not Recovered/Not Resolved]
  - Disability [Unknown]
  - Anhedonia [Unknown]
  - Pain [Unknown]

NARRATIVE: CASE EVENT DATE: 20200301
